FAERS Safety Report 7572885-1 (Version None)
Quarter: 2011Q2

REPORT INFORMATION
  Report Type: 
  Country: None (occurrence: None)
  Receive Date: 20110627
  Receipt Date: 20110620
  Transmission Date: 20111010
  Serious: Yes (Death)
  Sender: FDA-Public Use
  Company Number: JP-ELI_LILLY_AND_COMPANY-JP201103008200

PATIENT
  Sex: Female
  Weight: 34 kg

DRUGS (2)
  1. ZYPREXA [Suspect]
     Indication: SCHIZOPHRENIA
     Dosage: 5 MG, QD
     Route: 048
     Dates: start: 20110314, end: 20110316
  2. DIPHENHYDRAMINE HCL [Concomitant]
     Indication: SCHIZOPHRENIA
     Dosage: 2 DF, BID
     Route: 048
     Dates: start: 20110314, end: 20110316

REACTIONS (3)
  - PYREXIA [None]
  - HYPOGLYCAEMIA [None]
  - RENAL FAILURE [None]
